FAERS Safety Report 4657765-3 (Version None)
Quarter: 2005Q2

REPORT INFORMATION
  Report Type: 
  Country: None (occurrence: None)
  Receive Date: 20050510
  Receipt Date: 20050404
  Transmission Date: 20051028
  Serious: Yes (Hospitalization)
  Sender: FDA-Public Use
  Company Number: US-GLAXOSMITHKLINE-A0552727A

PATIENT
  Age: 57 Year
  Sex: Female
  Weight: 78.6 kg

DRUGS (2)
  1. EQUATE NICOTINE GUM 4MG [Suspect]
     Indication: SMOKING CESSATION THERAPY
     Route: 002
     Dates: start: 20050301, end: 20050401
  2. DIOVAN [Concomitant]
     Indication: HYPERTENSION

REACTIONS (6)
  - CONTUSION [None]
  - DRUG HYPERSENSITIVITY [None]
  - HYPERSENSITIVITY [None]
  - IMMUNE SYSTEM DISORDER [None]
  - PLATELET COUNT DECREASED [None]
  - THROMBOCYTOPENIC PURPURA [None]
